FAERS Safety Report 15933406 (Version 1)
Quarter: 2019Q1

REPORT INFORMATION
  Report Type: Spontaneous
  Country: US (occurrence: US)
  Receive Date: 20190207
  Receipt Date: 20190207
  Transmission Date: 20190417
  Serious: No
  Sender: FDA-Public Use
  Company Number: US-ABBVIE-19K-163-2630517-00

PATIENT
  Age: 34 Year
  Sex: Male

DRUGS (1)
  1. MAVYRET [Suspect]
     Active Substance: GLECAPREVIR\PIBRENTASVIR
     Indication: CHRONIC HEPATITIS C
     Route: 048
     Dates: start: 20181002, end: 20181107

REACTIONS (4)
  - Aspartate aminotransferase abnormal [Recovering/Resolving]
  - Arthralgia [Not Recovered/Not Resolved]
  - Alanine aminotransferase abnormal [Recovered/Resolved]
  - Blood bilirubin abnormal [Not Recovered/Not Resolved]

NARRATIVE: CASE EVENT DATE: 20181030
